FAERS Safety Report 15556969 (Version 1)
Quarter: 2018Q4

REPORT INFORMATION
  Report Type: Spontaneous
  Country: US (occurrence: US)
  Receive Date: 20181026
  Receipt Date: 20181026
  Transmission Date: 20190205
  Serious: Yes (Hospitalization, Other)
  Sender: FDA-Public Use
  Company Number: US-MYLANLABS-2018M1076460

PATIENT
  Age: 66 Year
  Sex: Female
  Weight: 68 kg

DRUGS (5)
  1. LASIX [Concomitant]
     Active Substance: FUROSEMIDE
     Indication: FLUID RETENTION
     Dosage: UNK
  2. NIFEDIPINE EXTENDED-RELEASE TABLETS, USP [Suspect]
     Active Substance: NIFEDIPINE
     Indication: HYPERTENSION
     Dosage: UNK (FROM 5 YEARS)
     Route: 048
  3. NIFEDIPINE EXTENDED-RELEASE TABLETS, USP [Suspect]
     Active Substance: NIFEDIPINE
     Indication: HYPERTENSION
     Dosage: UNK
     Route: 048
     Dates: start: 201808
  4. METOPROLOL. [Concomitant]
     Active Substance: METOPROLOL
     Indication: PRODUCT USED FOR UNKNOWN INDICATION
     Dosage: 1 DF, BID
  5. METOPROLOL. [Concomitant]
     Active Substance: METOPROLOL
     Dosage: 2 DF, BID

REACTIONS (7)
  - Chest pain [Recovered/Resolved]
  - Blood pressure increased [Not Recovered/Not Resolved]
  - Dyspnoea [Recovered/Resolved]
  - Malaise [Unknown]
  - Pain in extremity [Recovered/Resolved]
  - Atrioventricular block [Recovered/Resolved]
  - Neck pain [Recovered/Resolved]
